FAERS Safety Report 25699443 (Version 1)
Quarter: 2025Q3

REPORT INFORMATION
  Report Type: Spontaneous
  Country: GB (occurrence: GB)
  Receive Date: 20250819
  Receipt Date: 20250819
  Transmission Date: 20251021
  Serious: Yes (Other)
  Sender: RANBAXY
  Company Number: GB-SUN PHARMACEUTICAL INDUSTRIES LTD-2025RR-522948

PATIENT
  Age: 30 Year
  Sex: Male
  Weight: 143 kg

DRUGS (4)
  1. CITALOPRAM [Suspect]
     Active Substance: CITALOPRAM
     Indication: Ill-defined disorder
     Route: 065
     Dates: start: 20250804
  2. CITALOPRAM [Concomitant]
     Active Substance: CITALOPRAM
     Indication: Ill-defined disorder
     Route: 065
     Dates: start: 20241218, end: 20250721
  3. VENLAFAXINE [Concomitant]
     Active Substance: VENLAFAXINE HYDROCHLORIDE
     Indication: Ill-defined disorder
     Route: 065
     Dates: start: 20250804
  4. AMITRIPTYLINE HYDROCHLORIDE [Concomitant]
     Active Substance: AMITRIPTYLINE HYDROCHLORIDE
     Indication: Ill-defined disorder
     Route: 065
     Dates: start: 20241022, end: 20250623

REACTIONS (1)
  - Pancreatitis acute [Recovered/Resolved]

NARRATIVE: CASE EVENT DATE: 20250804
